FAERS Safety Report 7470892-0 (Version None)
Quarter: 2011Q2

REPORT INFORMATION
  Report Type: 
  Country: None (occurrence: None)
  Receive Date: 20110506
  Receipt Date: 20110506
  Transmission Date: 20111010
  Serious: Yes (Hospitalization, Disabling, Other)
  Sender: FDA-Public Use
  Company Number: None

PATIENT
  Age: 57 Year
  Sex: Female
  Weight: 113.3993 kg

DRUGS (1)
  1. AVALIDE [Suspect]
     Indication: BLOOD PRESSURE
     Dosage: 150/12.5 MG 1 TAB A DAY MOUTH
     Route: 048
     Dates: start: 20090701, end: 20100427

REACTIONS (1)
  - ATRIAL FIBRILLATION [None]
